FAERS Safety Report 8930166 (Version 2)
Quarter: 2013Q1

REPORT INFORMATION
  Report Type: Spontaneous
  Country: US (occurrence: US)
  Receive Date: 20121128
  Receipt Date: 20130214
  Transmission Date: 20140127
  Serious: Yes (Other)
  Sender: FDA-Public Use
  Company Number: US-GLAXOSMITHKLINE-A1003010A

PATIENT
  Age: 73 Year
  Sex: Female
  Weight: 69 kg

DRUGS (6)
  1. EQUATE NTS 21MG [Suspect]
     Indication: SMOKING CESSATION THERAPY
     Route: 062
     Dates: start: 20121116, end: 20121123
  2. EQUATE NTS 21MG [Suspect]
     Indication: SMOKING CESSATION THERAPY
     Route: 062
     Dates: start: 20121123, end: 20121126
  3. COMBIVENT [Concomitant]
  4. ALBUTEROL [Concomitant]
  5. ASPIRIN [Concomitant]
  6. VERAPAMIL [Concomitant]

REACTIONS (7)
  - Application site erythema [Recovered/Resolved]
  - Application site pain [Recovered/Resolved]
  - Application site pruritus [Recovered/Resolved]
  - Erythema [Recovered/Resolved]
  - Myocardial infarction [Recovered/Resolved]
  - Rash papular [Unknown]
  - Application site rash [Recovering/Resolving]
